FAERS Safety Report 24689557 (Version 1)
Quarter: 2024Q4

REPORT INFORMATION
  Report Type: Spontaneous
  Country: US (occurrence: US)
  Receive Date: 20241203
  Receipt Date: 20241203
  Transmission Date: 20250115
  Serious: Yes (Other)
  Sender: NOVITIUM PHARMA
  Company Number: US-NOVITIUMPHARMA-2024USNVP02758

PATIENT
  Sex: Female

DRUGS (5)
  1. PREDNISONE [Suspect]
     Active Substance: PREDNISONE
     Indication: Immune-complex membranoproliferative glomerulonephritis
  2. PREDNISONE [Suspect]
     Active Substance: PREDNISONE
     Dosage: DOSE TAPERED
  3. PREDNISONE [Suspect]
     Active Substance: PREDNISONE
     Dosage: DOSE INCREASED
  4. MYCOPHENOLIC ACID [Concomitant]
     Active Substance: MYCOPHENOLIC ACID
     Indication: Immune-complex membranoproliferative glomerulonephritis
  5. REPOSITORY CORTICOTROPIN [Suspect]
     Active Substance: REPOSITORY CORTICOTROPIN

REACTIONS (3)
  - Suicidal ideation [Unknown]
  - Rebound effect [Unknown]
  - Depression [Unknown]
